FAERS Safety Report 7271234-6 (Version None)
Quarter: 2011Q1

REPORT INFORMATION
  Report Type: 
  Country: None (occurrence: None)
  Receive Date: 20110202
  Receipt Date: 20110126
  Transmission Date: 20110831
  Serious: Yes (Hospitalization)
  Sender: FDA-Public Use
  Company Number: JP-BRISTOL-MYERS SQUIBB COMPANY-15480338

PATIENT
  Age: 61 Year
  Sex: Male
  Weight: 75 kg

DRUGS (5)
  1. MICARDIS [Suspect]
     Indication: HYPERTENSION
     Dosage: 27DEC10-06JAN11 11 DAYS ALSO 24JAN2011-ONG
     Route: 048
     Dates: start: 20101227
  2. SAXAGLIPTIN [Suspect]
     Indication: TYPE 2 DIABETES MELLITUS
     Route: 048
     Dates: start: 20100927, end: 20110105
  3. VOGLIBOSE [Suspect]
     Indication: TYPE 2 DIABETES MELLITUS
     Dosage: 26JUL10-06JAN11 165 DAYS
     Route: 048
     Dates: start: 20100405
  4. ALLEGRA [Concomitant]
     Indication: SEASONAL ALLERGY
     Route: 048
     Dates: start: 20101227
  5. LOCHOL [Suspect]
     Indication: DYSLIPIDAEMIA
     Dosage: 26JUL-06JAN11.165 DAYS 24JAN11-ONG
     Route: 048
     Dates: start: 20100726

REACTIONS (1)
  - VIITH NERVE PARALYSIS [None]
